FAERS Safety Report 8044787-8 (Version None)
Quarter: 2012Q1

REPORT INFORMATION
  Report Type: 
  Country: None (occurrence: None)
  Receive Date: 20120113
  Receipt Date: 20120110
  Transmission Date: 20120608
  Serious: Yes (Other)
  Sender: FDA-Public Use
  Company Number: US-PFIZER INC-2011200975

PATIENT
  Sex: Male
  Weight: 129 kg

DRUGS (12)
  1. LYRICA [Suspect]
     Indication: NEUROPATHY PERIPHERAL
  2. LOPRESSOR [Concomitant]
     Dosage: 50 MG
  3. LISINOPRIL [Concomitant]
     Indication: HYPERTENSION
     Dosage: 25 MG, UNK
  4. IBUPROFEN [Concomitant]
     Indication: PAIN
     Dosage: 600 MG-800 MG, EVERY 6 HOURS
  5. HYDROCHLOROTHIAZIDE [Concomitant]
     Indication: PAIN
     Dosage: 12.5 MG
  6. METOPROLOL [Concomitant]
     Indication: HYPERTENSION
     Dosage: 50 MG, 2X/DAY
  7. LYRICA [Suspect]
     Indication: CARPAL TUNNEL SYNDROME
  8. LYRICA [Suspect]
     Indication: NEURALGIA
     Dosage: 50 MG, 2X/DAY
     Route: 048
     Dates: start: 20110401, end: 20110701
  9. METFORMIN HCL [Suspect]
     Indication: DIABETES MELLITUS
     Dosage: 1000 MG, 2X/DAY
  10. LISINOPRIL AND HYDROCHLOROTHIAZIDE [Concomitant]
     Indication: HYPERTENSION
     Dosage: 20/25 MG/MG, DAILY
     Route: 048
  11. LYRICA [Suspect]
     Indication: MUSCULOSKELETAL PAIN
     Dosage: 50 MG, EVERY TWO DAYS
     Dates: start: 20110701
  12. LYRICA [Suspect]
     Indication: NERVE INJURY

REACTIONS (25)
  - SURGERY [None]
  - NERVE INJURY [None]
  - TOOTH FRACTURE [None]
  - PAIN IN EXTREMITY [None]
  - MUSCULOSKELETAL PAIN [None]
  - SENSORY DISTURBANCE [None]
  - HEADACHE [None]
  - MUSCLE CONTRACTIONS INVOLUNTARY [None]
  - NEURALGIA [None]
  - SENSATION OF HEAVINESS [None]
  - FATIGUE [None]
  - ORAL SURGERY [None]
  - FEELING OF BODY TEMPERATURE CHANGE [None]
  - VISUAL IMPAIRMENT [None]
  - MEMORY IMPAIRMENT [None]
  - NERVOUS SYSTEM DISORDER [None]
  - MUSCLE TIGHTNESS [None]
  - PAIN [None]
  - MUSCLE SPASMS [None]
  - SWELLING [None]
  - VISION BLURRED [None]
  - PARAESTHESIA [None]
  - PYREXIA [None]
  - MUSCLE TWITCHING [None]
  - HYPOAESTHESIA [None]
